FAERS Safety Report 8328633-0 (Version None)
Quarter: 2012Q2

REPORT INFORMATION
  Report Type: 
  Country: None (occurrence: None)
  Receive Date: 20120502
  Receipt Date: 20120425
  Transmission Date: 20120825
  Serious: Yes (Hospitalization)
  Sender: FDA-Public Use
  Company Number: JP-CELGENEUS-087-21880-11040356

PATIENT
  Sex: Male

DRUGS (41)
  1. REVLIMID [Suspect]
     Indication: MULTIPLE MYELOMA
     Route: 048
     Dates: start: 20110113, end: 20110202
  2. ZOMETA [Concomitant]
     Route: 041
     Dates: start: 20110725, end: 20110725
  3. FLUCONAZOLE [Concomitant]
     Indication: PROPHYLAXIS
     Route: 048
     Dates: start: 20110715
  4. DEXAMETHASONE ACETATE [Suspect]
     Route: 048
     Dates: start: 20110608, end: 20110615
  5. COTRIM [Concomitant]
     Indication: PROPHYLAXIS
     Route: 048
     Dates: start: 20091030, end: 20111106
  6. REVLIMID [Suspect]
     Route: 048
     Dates: start: 20110504, end: 20110524
  7. REVLIMID [Suspect]
     Route: 048
     Dates: start: 20110726, end: 20110807
  8. DEXAMETHASONE ACETATE [Suspect]
     Route: 048
     Dates: start: 20110504, end: 20110518
  9. ASPIRIN [Concomitant]
     Route: 048
     Dates: start: 20110726, end: 20111106
  10. LOXONIN [Concomitant]
     Indication: MULTIPLE MYELOMA
     Dosage: 0-120MG
     Route: 048
     Dates: start: 20101215, end: 20110101
  11. ZOVIRAX [Concomitant]
     Indication: PROPHYLAXIS
     Route: 048
     Dates: start: 20110121, end: 20110128
  12. PURSENNID [Concomitant]
     Route: 048
     Dates: start: 20100420, end: 20111106
  13. URIEF [Concomitant]
     Route: 048
     Dates: start: 20100524, end: 20111106
  14. URSO 250 [Concomitant]
     Indication: PROPHYLAXIS
     Route: 048
     Dates: start: 20110128, end: 20110420
  15. REVLIMID [Suspect]
     Route: 048
     Dates: start: 20110310, end: 20110329
  16. REVLIMID [Suspect]
     Route: 048
     Dates: start: 20110824, end: 20110830
  17. REVLIMID [Suspect]
     Route: 048
     Dates: start: 20110907, end: 20110920
  18. DEXAMETHASONE ACETATE [Suspect]
     Indication: MULTIPLE MYELOMA
     Route: 048
     Dates: start: 20110113, end: 20110201
  19. DEXAMETHASONE ACETATE [Suspect]
     Route: 048
     Dates: start: 20110824, end: 20110830
  20. SELBEX [Concomitant]
     Indication: PROPHYLAXIS
     Route: 048
     Dates: start: 20101221, end: 20110101
  21. ZOMETA [Concomitant]
     Indication: MULTIPLE MYELOMA
     Route: 041
     Dates: start: 20110516, end: 20110518
  22. FLUCONAZOLE [Concomitant]
     Route: 048
     Dates: start: 20110726, end: 20111106
  23. DEXAMETHASONE ACETATE [Suspect]
     Route: 048
     Dates: start: 20110310, end: 20110324
  24. DEXAMETHASONE ACETATE [Suspect]
     Route: 048
     Dates: start: 20110907, end: 20110920
  25. ZOVIRAX [Concomitant]
     Route: 048
     Dates: start: 20110211, end: 20111106
  26. FAMOTIDINE [Concomitant]
     Indication: PROPHYLAXIS
     Route: 048
     Dates: start: 20101223
  27. SELTOUCH [Concomitant]
     Indication: MULTIPLE MYELOMA
     Route: 061
     Dates: start: 20110104, end: 20110101
  28. OXYCONTIN [Concomitant]
     Indication: MULTIPLE MYELOMA
     Dosage: 5-30 MG
     Route: 048
     Dates: start: 20110630, end: 20111106
  29. DEXAMETHASONE ACETATE [Suspect]
     Route: 048
     Dates: start: 20110210, end: 20110224
  30. DEXAMETHASONE ACETATE [Suspect]
     Route: 048
     Dates: start: 20110406, end: 20110420
  31. URSO 250 [Concomitant]
     Route: 048
     Dates: start: 20110726, end: 20111106
  32. ZOMETA [Concomitant]
     Route: 041
     Dates: start: 20110622, end: 20110622
  33. LAXOBERON [Concomitant]
     Route: 048
     Dates: start: 20110707
  34. DEXAMETHASONE ACETATE [Suspect]
     Route: 048
     Dates: start: 20110726, end: 20110807
  35. SELTOUCH [Concomitant]
     Route: 061
     Dates: start: 20110526
  36. REVLIMID [Suspect]
     Route: 048
     Dates: start: 20110210, end: 20110302
  37. REVLIMID [Suspect]
     Route: 048
     Dates: start: 20110406, end: 20110426
  38. REVLIMID [Suspect]
     Route: 048
     Dates: start: 20110608, end: 20110621
  39. ASPIRIN [Concomitant]
     Indication: PROPHYLAXIS
     Route: 048
     Dates: start: 20101223, end: 20110714
  40. ZOLPIDEM [Concomitant]
     Route: 048
     Dates: start: 20100108, end: 20111106
  41. FAMOTIDINE [Concomitant]
     Route: 048
     Dates: start: 20110726, end: 20111106

REACTIONS (14)
  - C-REACTIVE PROTEIN INCREASED [None]
  - LIVER DISORDER [None]
  - PYREXIA [None]
  - BONE PAIN [None]
  - PLATELET COUNT DECREASED [None]
  - PNEUMONIA [None]
  - WHITE BLOOD CELL COUNT DECREASED [None]
  - NEUTROPHIL COUNT DECREASED [None]
  - DRY SKIN [None]
  - HAEMOGLOBIN DECREASED [None]
  - OEDEMA PERIPHERAL [None]
  - HYPERGLYCAEMIA [None]
  - THROMBOCYTOPENIA [None]
  - ANAEMIA [None]
